FAERS Safety Report 9563374 (Version 1)
Quarter: 2013Q3

REPORT INFORMATION
  Report Type: Spontaneous
  Country: US (occurrence: US)
  Receive Date: 20130927
  Receipt Date: 20130927
  Transmission Date: 20140515
  Serious: Yes (Hospitalization, Other)
  Sender: FDA-Public Use
  Company Number: US-TEVA-433849USA

PATIENT
  Age: 59 Year
  Sex: Male
  Weight: 121.67 kg

DRUGS (9)
  1. WARFARIN [Suspect]
     Indication: THROMBOSIS
  2. NEXIUM [Concomitant]
     Indication: BARRETT^S OESOPHAGUS
     Dosage: 80 MILLIGRAM DAILY;
  3. PRISTIQ [Concomitant]
     Indication: DEPRESSION
     Dosage: 50 MILLIGRAM DAILY;
  4. PRAVASTATIN [Concomitant]
     Indication: BLOOD CHOLESTEROL
  5. CENTRUM SILVER [Concomitant]
  6. FISH OIL [Concomitant]
  7. LYRICA [Concomitant]
     Indication: PAIN IN EXTREMITY
     Dosage: 1800 MILLIGRAM DAILY;
  8. PRIMIDONE [Concomitant]
     Indication: TREMOR
  9. GAMUNEX [Concomitant]
     Indication: CHRONIC INFLAMMATORY DEMYELINATING POLYRADICULONEUROPATHY
     Route: 042

REACTIONS (8)
  - Arthropod sting [Unknown]
  - Venom poisoning [Unknown]
  - Lower limb fracture [Unknown]
  - Knee arthroplasty [Unknown]
  - Thrombosis [Unknown]
  - Renal failure acute [Recovered/Resolved]
  - Tinnitus [Unknown]
  - Periorbital contusion [Recovered/Resolved]
